FAERS Safety Report 7271497-7 (Version None)
Quarter: 2011Q1

REPORT INFORMATION
  Report Type: 
  Country: None (occurrence: None)
  Receive Date: 20110203
  Receipt Date: 20110127
  Transmission Date: 20110831
  Serious: Yes (Death, Hospitalization)
  Sender: FDA-Public Use
  Company Number: FI-AMGEN-FINSP2011005681

PATIENT
  Age: 65 Year
  Sex: Male

DRUGS (8)
  1. ENBREL [Suspect]
     Indication: RHEUMATOID ARTHRITIS
     Dosage: 50 MG, WEEKLY
     Route: 058
     Dates: start: 20080103, end: 20101018
  2. BISOPROLOL [Concomitant]
     Indication: CARDIAC FAILURE
     Dosage: 5MG DAILY
     Route: 048
     Dates: start: 20100101
  3. SPIRESIS [Concomitant]
     Indication: CARDIAC FAILURE
     Dosage: 25MG DAILY
     Route: 048
     Dates: start: 20100901
  4. MAREVAN [Concomitant]
     Indication: ATRIAL FIBRILLATION
     Dosage: UNK
     Route: 048
     Dates: start: 20100101
  5. PANADOL                            /00020001/ [Concomitant]
     Indication: RHEUMATOID ARTHRITIS
     Dosage: 3 GRAMS DAILY
     Route: 048
  6. FURESIS [Concomitant]
     Indication: CARDIAC FAILURE
     Dosage: 120 MG DAILY
     Route: 048
     Dates: start: 20100101
  7. SPIRIVA [Concomitant]
     Indication: CHRONIC OBSTRUCTIVE PULMONARY DISEASE
     Dosage: ONE DOSE ONCE DAILY
     Route: 055
  8. SERETIDE DISCUS [Concomitant]
     Indication: CHRONIC OBSTRUCTIVE PULMONARY DISEASE
     Dosage: 1 DOSE TWO TIMES DAILY
     Route: 055

REACTIONS (3)
  - PULMONARY FIBROSIS [None]
  - PNEUMONIA [None]
  - CARDIAC FAILURE [None]
